FAERS Safety Report 10208753 (Version 2)
Quarter: 2014Q2

REPORT INFORMATION
  Report Type: Spontaneous
  Country: US (occurrence: US)
  Receive Date: 20140530
  Receipt Date: 20140530
  Transmission Date: 20141212
  Serious: Yes (Other)
  Sender: FDA-Public Use
  Company Number: US-JNJFOC-20140503068

PATIENT
  Age: 78 Year
  Sex: Male
  Weight: 89 kg

DRUGS (16)
  1. IMBRUVICA [Suspect]
     Indication: CHRONIC LYMPHOCYTIC LEUKAEMIA
     Route: 065
     Dates: start: 20140318, end: 20140322
  2. SERTRALINE [Concomitant]
  3. LIPITOR [Concomitant]
  4. AVODART [Concomitant]
  5. FERROUS SULFATE [Concomitant]
  6. LEVOTHYROXINE [Concomitant]
  7. SULFAMETHOXAZOLE AND TRIMETHOPRIM [Concomitant]
  8. CYANOCOBALAMIN [Concomitant]
  9. ZESTRIL [Concomitant]
  10. FLOMAX [Concomitant]
  11. ATENOLOL [Concomitant]
  12. ASPIRIN [Concomitant]
     Dates: end: 20140325
  13. OMEPRAZOLE [Concomitant]
  14. LEXAPRO [Concomitant]
  15. PREDNISONE [Concomitant]
  16. RITUXAN [Concomitant]

REACTIONS (3)
  - Haemorrhage [Recovered/Resolved]
  - White blood cell count increased [Recovering/Resolving]
  - Disease progression [Unknown]
